FAERS Safety Report 24312630 (Version 1)
Quarter: 2024Q3

REPORT INFORMATION
  Report Type: Spontaneous
  Country: US (occurrence: None)
  Receive Date: 20240911
  Receipt Date: 20240911
  Transmission Date: 20241016
  Serious: Yes (Other)
  Sender: Public
  Company Number: None

PATIENT
  Age: 37 Year
  Sex: Female

DRUGS (1)
  1. ONDANSETRON [Suspect]
     Active Substance: ONDANSETRON
     Indication: Procedural nausea
     Dosage: OTHER QUANTITY : 1 INJECTION(S);?FREQUENCY : AS NEEDED;?
     Dates: start: 20240911, end: 20240911

REACTIONS (3)
  - Rash [None]
  - Pain [None]
  - Urticaria [None]

NARRATIVE: CASE EVENT DATE: 20240911
